FAERS Safety Report 9018346 (Version 1)
Quarter: 2013Q1

REPORT INFORMATION
  Report Type: Spontaneous
  Country: US (occurrence: None)
  Receive Date: 20130111
  Receipt Date: 20130111
  Transmission Date: 20140127
  Serious: Yes (Other)
  Sender: FDA-Public Use
  Company Number: None

PATIENT
  Age: 44 Year
  Sex: Female
  Weight: 59.88 kg

DRUGS (1)
  1. BOTOX [Suspect]

REACTIONS (6)
  - Influenza like illness [None]
  - Pneumonia [None]
  - Night sweats [None]
  - Muscle spasms [None]
  - Dyspnoea [None]
  - Heart rate increased [None]
